FAERS Safety Report 7089302-0 (Version None)
Quarter: 2010Q4

REPORT INFORMATION
  Report Type: 
  Country: None (occurrence: None)
  Receive Date: 20101108
  Receipt Date: 20101026
  Transmission Date: 20110411
  Serious: Yes (Death)
  Sender: FDA-Public Use
  Company Number: JP-GENZYME-RENA-1000780

PATIENT
  Sex: Male

DRUGS (17)
  1. RENAGEL [Suspect]
     Indication: HYPERPHOSPHATAEMIA
     Dosage: UNK
     Route: 048
  2. EPOGIN [Suspect]
     Indication: NEPHROGENIC ANAEMIA
     Dosage: 3000 IU, TIW
     Route: 065
     Dates: start: 20090626, end: 20090724
  3. ADECUT [Concomitant]
     Route: 065
  4. ADALAT [Concomitant]
     Route: 065
  5. OLMETEC [Concomitant]
     Route: 065
  6. DOXAZOSIN MESYLATE [Concomitant]
     Route: 065
  7. MUCOSTA [Concomitant]
     Route: 065
  8. LAXOBERON [Concomitant]
     Route: 065
  9. PURSENNID [Concomitant]
     Route: 065
  10. CERCINE [Concomitant]
     Route: 065
  11. ROHYPNOL [Concomitant]
     Route: 065
  12. ALOSENN [Concomitant]
     Route: 065
  13. TAKEPRON [Concomitant]
     Route: 065
  14. ARTIST [Concomitant]
     Route: 065
  15. NAUZELIN [Concomitant]
     Route: 065
  16. REGPARA [Concomitant]
     Route: 065
  17. ALLEGRA [Concomitant]
     Route: 065

REACTIONS (1)
  - LEUKAEMIA [None]
